FAERS Safety Report 9258050 (Version 1)
Quarter: 2013Q2

REPORT INFORMATION
  Report Type: Spontaneous
  Country: AU (occurrence: None)
  Receive Date: 20130423
  Receipt Date: 20130423
  Transmission Date: 20140414
  Serious: Yes (Other)
  Sender: FDA-Public Use
  Company Number: AU-EMCURE-000708

PATIENT
  Age: 67 Year
  Sex: Male

DRUGS (12)
  1. CARMUSTINE [Suspect]
     Indication: STEM CELL TRANSPLANT
  2. ETOPOSIDE PHOSPHATE [Suspect]
     Indication: STEM CELL TRANSPLANT
  3. GRANISETRON (GRANISETRON) [Concomitant]
  4. DEXAMETHASONE (DEXAMETHASONE) [Concomitant]
  5. CYCLOPHOSPHAMIDE (CYCLOPHOSPHAMIDE) [Concomitant]
  6. VALACICLOVIR (VALACICLOVIR) [Concomitant]
  7. FLUCONAZOLE (FLUCONAZOLE) [Concomitant]
  8. METOCLOPRAMIDE (METOCLOPRAMIDE) [Concomitant]
  9. FELODIPINE (FELODIPINE) [Concomitant]
  10. ATOVASTATIN (ATORVASTATIN) [Concomitant]
  11. HYDROCHLOROTHIAZIDE W/IRBESARTAN (HYDROCHLOROTHIAZIDE W/IRBESARTAN) [Concomitant]
  12. SERTRALINE (SERTRALINE) (SERTRALINE) [Concomitant]

REACTIONS (6)
  - Renal failure acute [None]
  - Proteinuria [None]
  - Blood phosphorus increased [None]
  - Blood lactate dehydrogenase increased [None]
  - Haemodialysis [None]
  - Off label use [None]
